FAERS Safety Report 11162699 (Version 1)
Quarter: 2015Q2

REPORT INFORMATION
  Report Type: Spontaneous
  Country: IL (occurrence: None)
  Receive Date: 20150602
  Receipt Date: 20150602
  Transmission Date: 20150821
  Serious: Yes (Other)
  Sender: FDA-Public Use
  Company Number: FK201502542

PATIENT
  Age: 69 Year
  Sex: Male

DRUGS (2)
  1. CISPLATIN (CISPLATIN) (CISPLATIN) [Suspect]
     Active Substance: CISPLATIN
     Indication: OESOPHAGEAL CARCINOMA
  2. FLUOROURACIL (FLUOROURACIL) (FLUOROURACIL) [Suspect]
     Active Substance: FLUOROURACIL
     Indication: OESOPHAGEAL CARCINOMA

REACTIONS (3)
  - Decreased appetite [None]
  - Nausea [None]
  - Neuropathy peripheral [None]
